FAERS Safety Report 20741692 (Version 4)
Quarter: 2022Q4

REPORT INFORMATION
  Report Type: Other
  Country: CN (occurrence: None)
  Receive Date: 20220422
  Receipt Date: 20221102
  Transmission Date: 20230113
  Serious: Yes (Hospitalization)
  Sender: FDA-Public Use
  Company Number: CN-ROCHE-3059942

PATIENT
  Age: 69 Year
  Sex: Female

DRUGS (1)
  1. TECENTRIQ [Suspect]
     Active Substance: ATEZOLIZUMAB
     Indication: Lung neoplasm malignant
     Route: 041
     Dates: start: 20220303

REACTIONS (7)
  - Rash [Unknown]
  - Asthenia [Unknown]
  - Nasopharyngitis [Recovering/Resolving]
  - Blister [Recovering/Resolving]
  - Vertigo positional [Recovering/Resolving]
  - Ligament sprain [Unknown]
  - Fracture [Unknown]
